FAERS Safety Report 5180051-2 (Version None)
Quarter: 2006Q4

REPORT INFORMATION
  Report Type: 
  Country: None (occurrence: None)
  Receive Date: 20061212
  Receipt Date: 20061201
  Transmission Date: 20070319
  Serious: Yes (Hospitalization)
  Sender: FDA-Public Use
  Company Number: 2006-01971

PATIENT
  Age: 48 Year
  Sex: Male

DRUGS (4)
  1. VINCRISTINE [Suspect]
     Indication: MULTIPLE MYELOMA
  2. DOXORUBICIN HCL [Suspect]
     Indication: MULTIPLE MYELOMA
  3. DEXAMETHASONE [Suspect]
     Indication: MULTIPLE MYELOMA
  4. AMPICILLIN [Concomitant]

REACTIONS (3)
  - ANAEMIA [None]
  - MENINGITIS LISTERIA [None]
  - PARESIS CRANIAL NERVE [None]
